FAERS Safety Report 16831707 (Version 1)
Quarter: 2019Q3

REPORT INFORMATION
  Report Type: Spontaneous
  Country: US (occurrence: US)
  Receive Date: 20190920
  Receipt Date: 20190920
  Transmission Date: 20191005
  Serious: Yes (Other)
  Sender: FDA-Public Use
  Company Number: US-SA-2019SA260599

PATIENT
  Age: 48 Year
  Sex: Male

DRUGS (1)
  1. DUPILUMAB [Suspect]
     Active Substance: DUPILUMAB
     Indication: DERMATITIS ATOPIC
     Dosage: UNK UNK, QOW

REACTIONS (16)
  - Astigmatism [Recovering/Resolving]
  - Ocular hyperaemia [Recovering/Resolving]
  - Eyelid oedema [Recovering/Resolving]
  - Meibomian gland dysfunction [Recovering/Resolving]
  - Blepharitis [Recovering/Resolving]
  - Chalazion [Recovering/Resolving]
  - Vision blurred [Recovering/Resolving]
  - Dry eye [Recovering/Resolving]
  - Visual impairment [Recovering/Resolving]
  - Conjunctivitis [Recovering/Resolving]
  - Noninfective conjunctivitis [Recovering/Resolving]
  - Punctate keratitis [Recovering/Resolving]
  - Corneal neovascularisation [Recovering/Resolving]
  - Eye irritation [Recovering/Resolving]
  - Corneal scar [Recovering/Resolving]
  - Conjunctival hyperaemia [Recovering/Resolving]
